FAERS Safety Report 23457950 (Version 3)
Quarter: 2024Q2

REPORT INFORMATION
  Report Type: Spontaneous
  Country: US (occurrence: US)
  Receive Date: 20240130
  Receipt Date: 20240401
  Transmission Date: 20240716
  Serious: Yes (Death, Hospitalization, Other)
  Sender: FDA-Public Use
  Company Number: US-002147023-NVSC2024US020177

PATIENT
  Age: 89 Year
  Sex: Male

DRUGS (1)
  1. PROMACTA [Suspect]
     Active Substance: ELTROMBOPAG OLAMINE
     Indication: Immune thrombocytopenia
     Dosage: 25 MG, QD
     Route: 048
     Dates: start: 202310

REACTIONS (9)
  - Sepsis [Fatal]
  - Confusional state [Unknown]
  - Hypophagia [Unknown]
  - Hypotension [Unknown]
  - Acute kidney injury [Unknown]
  - Metabolic encephalopathy [Unknown]
  - Anaemia [Unknown]
  - Cellulitis [Unknown]
  - Cyanosis [Unknown]

NARRATIVE: CASE EVENT DATE: 20240125
